FAERS Safety Report 17770601 (Version 1)
Quarter: 2020Q2

REPORT INFORMATION
  Report Type: Spontaneous
  Country: ES (occurrence: ES)
  Receive Date: 20200512
  Receipt Date: 20200512
  Transmission Date: 20200714
  Serious: Yes (Hospitalization)
  Sender: FDA-Public Use
  Company Number: ES-PFIZER INC-2020187920

PATIENT
  Age: 52 Year
  Sex: Female

DRUGS (7)
  1. CHAMPIX [Suspect]
     Active Substance: VARENICLINE TARTRATE
     Indication: TOBACCO ABUSE
     Dosage: 0.5 MG, 2X/DAY
     Route: 048
     Dates: start: 20200217, end: 20200315
  2. JANUVIA [Concomitant]
     Active Substance: SITAGLIPTIN PHOSPHATE
     Indication: TYPE 2 DIABETES MELLITUS
     Dosage: 100 MG, 1X/DAY
     Route: 048
     Dates: start: 20170202
  3. PARACETAMOL CINFA [Concomitant]
     Dosage: 1 G, 3X/DAY
     Route: 048
     Dates: start: 20200323, end: 202003
  4. CHAMPIX [Suspect]
     Active Substance: VARENICLINE TARTRATE
     Dosage: 1 MG, 2X/DAY
     Route: 048
     Dates: start: 20200323, end: 20200414
  5. BUDESONIDE. [Concomitant]
     Active Substance: BUDESONIDE
     Dosage: 200 UG, 2X/DAY (EVERY 12 HOURS)
     Route: 048
     Dates: start: 20200323, end: 202003
  6. AMOXICILINA CINFA [Concomitant]
     Indication: RESPIRATORY TRACT INFECTION
     Dosage: 1 G, 3X/DAY
     Route: 048
     Dates: start: 20200323, end: 202003
  7. GLICLAZIDA CINFA [Concomitant]
     Indication: TYPE 2 DIABETES MELLITUS
     Dosage: 60 MG, 1X/DAY
     Route: 048
     Dates: start: 20171204

REACTIONS (2)
  - Gastritis [Recovered/Resolved]
  - Duodenitis [Recovered/Resolved]

NARRATIVE: CASE EVENT DATE: 20200329
